FAERS Safety Report 20628078 (Version 3)
Quarter: 2024Q2

REPORT INFORMATION
  Report Type: Spontaneous
  Country: US (occurrence: US)
  Receive Date: 20220323
  Receipt Date: 20240503
  Transmission Date: 20240716
  Serious: No
  Sender: FDA-Public Use
  Company Number: US-PFIZER INC-2021630107

PATIENT
  Age: 82 Year
  Sex: Male

DRUGS (1)
  1. RETACRIT [Suspect]
     Active Substance: EPOETIN ALFA-EPBX
     Indication: Chronic kidney disease
     Dosage: 10000 IU/ML EVERY 28 DAYS

REACTIONS (2)
  - Memory impairment [Unknown]
  - Off label use [Unknown]
